FAERS Safety Report 20883032 (Version 7)
Quarter: 2024Q1

REPORT INFORMATION
  Report Type: Report from Study
  Country: JP (occurrence: JP)
  Receive Date: 20220527
  Receipt Date: 20240209
  Transmission Date: 20240410
  Serious: Yes (Death, Life-Threatening, Hospitalization, Other)
  Sender: FDA-Public Use
  Company Number: JP-ASTELLAS-2022JP007681

PATIENT
  Age: 70 Year
  Sex: Male

DRUGS (18)
  1. ENFORTUMAB VEDOTIN [Suspect]
     Active Substance: ENFORTUMAB VEDOTIN
     Indication: Transitional cell carcinoma
     Route: 065
     Dates: start: 20220418, end: 20220425
  2. MEROPENEM [Suspect]
     Active Substance: MEROPENEM
     Indication: Febrile neutropenia
     Dosage: 0.5 G, TWICE DAILY
     Route: 065
     Dates: start: 20220503, end: 20220509
  3. FILGRASTIM [Concomitant]
     Active Substance: FILGRASTIM
     Indication: Febrile neutropenia
     Route: 065
     Dates: start: 20220503, end: 20220508
  4. INSULIN NOS [Concomitant]
     Active Substance: INSULIN NOS
     Indication: Hyperglycaemia
     Dosage: CONTINUOUS USE, AS APPROPRIATE BY BLOOD SUGAR VALUE
     Route: 065
     Dates: start: 20220507, end: 20220520
  5. MIYA-BM [Concomitant]
     Active Substance: CLOSTRIDIUM BUTYRICUM SPORES STRAIN M-55
     Indication: Diarrhoea
     Route: 048
     Dates: start: 20220509, end: 20220520
  6. XARELTO [Concomitant]
     Active Substance: RIVAROXABAN
     Indication: Vena cava embolism
     Route: 048
     Dates: start: 20220510, end: 20220520
  7. GLYCYRRHIZIN [Concomitant]
     Active Substance: GLYCYRRHIZIN
     Indication: Acute hepatic failure
     Route: 065
     Dates: start: 20220511, end: 20220520
  8. GLYCYRRHIZIN [Concomitant]
     Active Substance: GLYCYRRHIZIN
     Indication: Drug-induced liver injury
  9. URSODIOL [Concomitant]
     Active Substance: URSODIOL
     Indication: Acute hepatic failure
     Route: 048
     Dates: start: 20220511, end: 20220520
  10. URSODIOL [Concomitant]
     Active Substance: URSODIOL
     Indication: Drug-induced liver injury
  11. ALBUMINAR [Concomitant]
     Active Substance: ALBUMIN HUMAN
     Indication: Acute hepatic failure
     Dosage: 100 ML, CONTINUOUS
     Route: 065
     Dates: start: 20220511, end: 20220519
  12. DEXMEDETOMIDINE HYDROCHLORIDE [Concomitant]
     Active Substance: DEXMEDETOMIDINE HYDROCHLORIDE
     Indication: Restlessness
     Dosage: UNK UNK, AS APPROPRIATE WITH UNREST CONDITION
     Route: 065
     Dates: start: 20220511, end: 20220520
  13. DEXMEDETOMIDINE HYDROCHLORIDE [Concomitant]
     Active Substance: DEXMEDETOMIDINE HYDROCHLORIDE
     Indication: Cognitive disorder
  14. CEFTRIAXONE SODIUM [Concomitant]
     Active Substance: CEFTRIAXONE SODIUM
     Indication: Pneumonia
     Route: 065
     Dates: start: 20220511, end: 20220519
  15. SOLU-CORTEF [Concomitant]
     Active Substance: HYDROCORTISONE SODIUM SUCCINATE
     Indication: Shock
     Dosage: 200 MG, CONTINUOUS USE
     Route: 065
     Dates: start: 20220512, end: 20220519
  16. NOREPINEPHRINE [Concomitant]
     Active Substance: NOREPINEPHRINE
     Indication: Shock
     Dosage: 5 MG, CONTINUOUS USE
     Route: 065
     Dates: start: 20220512, end: 20220512
  17. FENTANYL [Concomitant]
     Active Substance: FENTANYL\FENTANYL CITRATE
     Indication: Restlessness
     Dosage: 0.5 MG, CONTINUOUS USE
     Route: 065
     Dates: start: 20220512, end: 20220513
  18. FENTANYL [Concomitant]
     Active Substance: FENTANYL\FENTANYL CITRATE
     Indication: Cognitive disorder

REACTIONS (10)
  - Acute hepatic failure [Fatal]
  - Drug-induced liver injury [Fatal]
  - Febrile neutropenia [Recovered/Resolved]
  - Hyperglycaemia [Not Recovered/Not Resolved]
  - Restlessness [Not Recovered/Not Resolved]
  - Cognitive disorder [Not Recovered/Not Resolved]
  - Vena cava embolism [Not Recovered/Not Resolved]
  - Pneumonia [Not Recovered/Not Resolved]
  - Shock [Recovering/Resolving]
  - Diarrhoea [Not Recovered/Not Resolved]

NARRATIVE: CASE EVENT DATE: 20220425
